FAERS Safety Report 15751587 (Version 1)
Quarter: 2018Q4

REPORT INFORMATION
  Report Type: Spontaneous
  Country: US (occurrence: US)
  Receive Date: 20181221
  Receipt Date: 20181221
  Transmission Date: 20190205
  Serious: No
  Sender: FDA-Public Use
  Company Number: US-UPSHER-SMITH LABORATORIES, LLC-2018USL00161

PATIENT
  Sex: Female

DRUGS (2)
  1. OTHER UNSPECIFIED MEDICATIONS [Suspect]
     Active Substance: UNSPECIFIED INGREDIENT
  2. POTASSIUM CHLORIDE MICRO-DISPERSIBLE [Suspect]
     Active Substance: POTASSIUM CHLORIDE
     Dosage: 420 MEQ, 1X/DAY
     Route: 048

REACTIONS (3)
  - Malaise [Not Recovered/Not Resolved]
  - Choking [Not Recovered/Not Resolved]
  - Feeling abnormal [Not Recovered/Not Resolved]
